FAERS Safety Report 5909730-3 (Version None)
Quarter: 2008Q3

REPORT INFORMATION
  Report Type: 
  Country: None (occurrence: None)
  Receive Date: 20080923
  Receipt Date: 20080909
  Transmission Date: 20090109
  Serious: Yes (Hospitalization)
  Sender: FDA-Public Use
  Company Number: 2008002351

PATIENT
  Age: 78 Year
  Sex: Female

DRUGS (4)
  1. ERLOTINIB (ERLOTINIB) (TABLET) (ERLOTINIB) [Suspect]
     Indication: LUNG NEOPLASM MALIGNANT
     Dosage: ORAL
     Route: 048
  2. ATARAX [Concomitant]
  3. VASTAREL (TRIMETAZIDINE) [Concomitant]
  4. LOVENOX [Concomitant]

REACTIONS (7)
  - ASTHENIA [None]
  - DERMATITIS ACNEIFORM [None]
  - DRUG INTOLERANCE [None]
  - FOLLICULITIS [None]
  - INFLAMMATION [None]
  - RASH PAPULAR [None]
  - RASH PUSTULAR [None]
